FAERS Safety Report 14876144 (Version 1)
Quarter: 2018Q2

REPORT INFORMATION
  Report Type: Spontaneous
  Country: US (occurrence: US)
  Receive Date: 20180510
  Receipt Date: 20180510
  Transmission Date: 20180711
  Serious: No
  Sender: FDA-Public Use
  Company Number: US-TAKEDA-2018TUS015852

PATIENT
  Age: 50 Year
  Sex: Female

DRUGS (2)
  1. COLCRYS [Suspect]
     Active Substance: COLCHICINE
     Indication: BEHCET^S SYNDROME
     Dosage: UNK UNK, BID
     Route: 048
  2. COLCRYS [Suspect]
     Active Substance: COLCHICINE
     Dosage: UNK UNK, BID
     Route: 048

REACTIONS (3)
  - Tongue erythema [Recovering/Resolving]
  - Swollen tongue [Recovering/Resolving]
  - Off label use [Unknown]
